FAERS Safety Report 5429270-8 (Version None)
Quarter: 2007Q3

REPORT INFORMATION
  Report Type: 
  Country: None (occurrence: None)
  Receive Date: 20070824
  Receipt Date: 20070810
  Transmission Date: 20080115
  Serious: Yes (Other)
  Sender: FDA-Public Use
  Company Number: DSJ-2007-05957

PATIENT
  Age: 49 Year
  Sex: Male

DRUGS (3)
  1. OFLOXACIN [Suspect]
     Indication: OTITIS EXTERNA
     Dosage: 2 DOSAGE FORMS, AURICULAR (OTIC)
     Route: 001
     Dates: start: 20060921
  2. PYOSTACINE (PRISTINAMYCIN) (TABET) (PRISTINAMYCN) [Suspect]
     Indication: EAR INFECTION
     Dosage: PER ORAL
     Route: 048
     Dates: start: 20060921, end: 20060101
  3. AURICULARIUM (NYSTATIN, POLYMYXIN  B SULFATE, OXYTETRACYCLINE HYDROCHL [Concomitant]

REACTIONS (1)
  - ACUTE GENERALISED EXANTHEMATOUS PUSTULOSIS [None]
